FAERS Safety Report 8366148-4 (Version None)
Quarter: 2012Q2

REPORT INFORMATION
  Report Type: 
  Country: None (occurrence: None)
  Receive Date: 20120516
  Receipt Date: 20120516
  Transmission Date: 20120825
  Serious: No
  Sender: FDA-Public Use
  Company Number: None

PATIENT
  Sex: Male

DRUGS (1)
  1. INTUNIV [Suspect]
     Indication: ATTENTION DEFICIT/HYPERACTIVITY DISORDER
     Dosage: 1 MG DAILY ORAL
     Route: 048
     Dates: start: 20111207, end: 20120314

REACTIONS (7)
  - HALLUCINATION, VISUAL [None]
  - VOMITING [None]
  - PYREXIA [None]
  - FEAR [None]
  - ABNORMAL BEHAVIOUR [None]
  - INSOMNIA [None]
  - MALAISE [None]
